FAERS Safety Report 6600515-1 (Version None)
Quarter: 2010Q1

REPORT INFORMATION
  Report Type: 
  Country: None (occurrence: None)
  Receive Date: 20100224
  Receipt Date: 20100219
  Transmission Date: 20100710
  Serious: Yes (Hospitalization)
  Sender: FDA-Public Use
  Company Number: US-MERCK-1002USA01171

PATIENT
  Age: 38 Year
  Sex: Male

DRUGS (3)
  1. SINGULAIR [Suspect]
     Indication: ASTHMA
     Route: 048
     Dates: start: 20040101, end: 20090401
  2. COUMADIN [Concomitant]
     Route: 065
  3. LASIX [Concomitant]
     Route: 065

REACTIONS (3)
  - CARDIAC FAILURE CONGESTIVE [None]
  - LUNG INFECTION [None]
  - MYOCARDIAL INFARCTION [None]
